FAERS Safety Report 10712742 (Version 1)
Quarter: 2015Q1

REPORT INFORMATION
  Report Type: Spontaneous
  Country: US (occurrence: None)
  Receive Date: 20150113
  Receipt Date: 20150113
  Transmission Date: 20150721
  Serious: Yes (Life-Threatening, Other)
  Sender: FDA-Public Use
  Company Number: BD-2014-0159

PATIENT
  Age: 30 Year
  Sex: Female

DRUGS (1)
  1. DIPHENHYDRAMINE [Suspect]
     Active Substance: DIPHENHYDRAMINE
     Indication: PRODUCT USED FOR UNKNOWN INDICATION

REACTIONS (8)
  - Cardiac arrest [None]
  - Altered state of consciousness [None]
  - Status epilepticus [None]
  - Overdose [None]
  - Hypotension [None]
  - Anticholinergic syndrome [None]
  - Toxicity to various agents [None]
  - Tachycardia [None]
